FAERS Safety Report 4727821-X (Version None)
Quarter: 2005Q3

REPORT INFORMATION
  Report Type: 
  Country: None (occurrence: None)
  Receive Date: 20050727
  Receipt Date: 20050721
  Transmission Date: 20060218
  Serious: Yes (Death)
  Sender: FDA-Public Use
  Company Number: A-CH2005-10184

PATIENT
  Age: 6 Year
  Sex: Female

DRUGS (3)
  1. TRACLEER [Suspect]
     Indication: PULMONARY VENO-OCCLUSIVE DISEASE
     Dosage: 31.25 MG, BID, ORAL
     Route: 048
     Dates: start: 20050501, end: 20050718
  2. OXYGEN (OXYGEN) [Concomitant]
  3. PREDNISONE TAB [Concomitant]

REACTIONS (2)
  - DISEASE PROGRESSION [None]
  - RIGHT VENTRICULAR FAILURE [None]
